FAERS Safety Report 6805241-1 (Version None)
Quarter: 2010Q2

REPORT INFORMATION
  Report Type: 
  Country: None (occurrence: None)
  Receive Date: 20100628
  Receipt Date: 20070913
  Transmission Date: 20101027
  Serious: No
  Sender: FDA-Public Use
  Company Number: US-PFIZER INC-2007077507

PATIENT
  Sex: Female
  Weight: 59.1 kg

DRUGS (2)
  1. XALATAN [Suspect]
     Indication: INTRAOCULAR PRESSURE INCREASED
     Dates: start: 20061101
  2. ALLERGY MEDICATION [Concomitant]
     Route: 048

REACTIONS (2)
  - EYE PRURITUS [None]
  - FEELING ABNORMAL [None]
